FAERS Safety Report 6046869-9 (Version None)
Quarter: 2009Q1

REPORT INFORMATION
  Report Type: 
  Country: None (occurrence: None)
  Receive Date: 20090122
  Receipt Date: 20090116
  Transmission Date: 20090719
  Serious: Yes (Hospitalization)
  Sender: FDA-Public Use
  Company Number: A0764593A

PATIENT
  Age: 71 Year
  Sex: Female
  Weight: 109.1 kg

DRUGS (1)
  1. AVANDIA [Suspect]
     Route: 048
     Dates: start: 19990101, end: 20070523

REACTIONS (1)
  - MYOCARDIAL INFARCTION [None]
